FAERS Safety Report 24444699 (Version 2)
Quarter: 2024Q4

REPORT INFORMATION
  Report Type: Report from Study
  Country: US (occurrence: US)
  Receive Date: 20241016
  Receipt Date: 20241017
  Transmission Date: 20250115
  Serious: No
  Sender: ROCHE
  Company Number: US-ROCHE-2848173

PATIENT
  Age: 62 Year
  Sex: Female

DRUGS (9)
  1. RITUXAN [Suspect]
     Active Substance: RITUXIMAB
     Indication: Granulomatosis with polyangiitis
     Dosage: DAY 0 AND 14 THE EVERY 6 MONTHS?QUANTITY: 2
     Route: 041
  2. RITUXAN [Suspect]
     Active Substance: RITUXIMAB
     Indication: Autoimmune disorder
  3. PREDNISONE [Concomitant]
     Active Substance: PREDNISONE
  4. AZELASTINE [Concomitant]
     Active Substance: AZELASTINE
  5. BIOTIN [Concomitant]
     Active Substance: BIOTIN
  6. ZYRTEC [Concomitant]
     Active Substance: CETIRIZINE HYDROCHLORIDE
  7. FERROUS GLUCONATE [Concomitant]
     Active Substance: FERROUS GLUCONATE
  8. LOSARTAN [Concomitant]
     Active Substance: LOSARTAN
  9. OMEPRAZOLE [Concomitant]
     Active Substance: OMEPRAZOLE

REACTIONS (2)
  - Off label use [Unknown]
  - No adverse event [Unknown]
